FAERS Safety Report 8062992-1 (Version None)
Quarter: 2012Q1

REPORT INFORMATION
  Report Type: 
  Country: None (occurrence: None)
  Receive Date: 20120123
  Receipt Date: 20120111
  Transmission Date: 20120608
  Serious: Yes (Death, Other)
  Sender: FDA-Public Use
  Company Number: JP-PFIZER INC-2011248619

PATIENT
  Age: 68 Year
  Sex: Male

DRUGS (5)
  1. PLAVIX [Suspect]
     Indication: THROMBOTIC CEREBRAL INFARCTION
     Dosage: UNK
     Route: 048
     Dates: start: 20110915
  2. ARGATROBAN [Suspect]
     Indication: THROMBOTIC CEREBRAL INFARCTION
     Dosage: UNK
     Route: 041
     Dates: start: 20110912, end: 20110917
  3. EDARAVONE [Suspect]
     Indication: THROMBOTIC CEREBRAL INFARCTION
     Dosage: 30 MG, 1X/DAY
     Route: 041
     Dates: start: 20110910, end: 20110910
  4. EDARAVONE [Suspect]
     Dosage: 30 MG, 2X/DAY
     Route: 041
     Dates: start: 20110911, end: 20110923
  5. GRTPA [Suspect]
     Indication: THROMBOTIC CEREBRAL INFARCTION
     Dosage: 44.7 ML, 1X/DAY
     Route: 042
     Dates: start: 20110910

REACTIONS (1)
  - HAEMORRHAGIC CEREBRAL INFARCTION [None]
